FAERS Safety Report 8133456-1 (Version None)
Quarter: 2012Q1

REPORT INFORMATION
  Report Type: 
  Country: None (occurrence: None)
  Receive Date: 20120213
  Receipt Date: 20120208
  Transmission Date: 20120608
  Serious: Yes (Other)
  Sender: FDA-Public Use
  Company Number: US-PFIZER INC-2012035459

PATIENT
  Sex: Female

DRUGS (2)
  1. LYRICA [Suspect]
     Dosage: 200 MG, UNK
  2. XANAX [Suspect]
     Dosage: UNK

REACTIONS (2)
  - OPEN WOUND [None]
  - FOOT OPERATION [None]
